FAERS Safety Report 16643111 (Version 1)
Quarter: 2019Q3

REPORT INFORMATION
  Report Type: Spontaneous
  Country: US (occurrence: US)
  Receive Date: 20190615
  Receipt Date: 20190615
  Transmission Date: 20191004
  Serious: No
  Sender: FDA-Public Use
  Company Number: None

PATIENT
  Age: 50 Year
  Sex: Male

DRUGS (1)
  1. CAPECITABINE 500MG  NOVADOZ [Suspect]
     Active Substance: CAPECITABINE
     Route: 048
     Dates: start: 20190425

REACTIONS (5)
  - Fatigue [None]
  - Asthenia [None]
  - Blister [None]
  - Therapy change [None]
  - Decreased appetite [None]

NARRATIVE: CASE EVENT DATE: 20190515
